FAERS Safety Report 4713568-2 (Version None)
Quarter: 2005Q3

REPORT INFORMATION
  Report Type: 
  Country: None (occurrence: None)
  Receive Date: 20050711
  Receipt Date: 20050624
  Transmission Date: 20060218
  Serious: Yes (Hospitalization)
  Sender: FDA-Public Use
  Company Number: 8010942

PATIENT
  Age: 40 Year
  Sex: Female
  Weight: 70 kg

DRUGS (7)
  1. KEPPRA [Suspect]
     Dosage: 43000 MG ONCE PO
     Route: 048
     Dates: start: 20050624, end: 20050624
  2. KEPPRA [Suspect]
     Dosage: 4500 MG ONCE PO
     Route: 048
     Dates: start: 20050624, end: 20050624
  3. DIAZEPAM [Concomitant]
  4. LAMOTRIGINE [Concomitant]
  5. NEURONTIN [Concomitant]
  6. TRAMADOL HCL [Concomitant]
  7. VOLTAREN [Concomitant]

REACTIONS (3)
  - INTENTIONAL MISUSE [None]
  - MULTIPLE DRUG OVERDOSE [None]
  - SUICIDE ATTEMPT [None]
